FAERS Safety Report 13293073 (Version 1)
Quarter: 2017Q1

REPORT INFORMATION
  Report Type: Spontaneous
  Country: US (occurrence: US)
  Receive Date: 20170303
  Receipt Date: 20170303
  Transmission Date: 20170428
  Serious: Yes (Hospitalization)
  Sender: FDA-Public Use
  Company Number: US-JNJFOC-20161218003

PATIENT
  Age: 78 Year
  Sex: Male
  Weight: 72.56 kg

DRUGS (5)
  1. ADEMPAS [Suspect]
     Active Substance: RIOCIGUAT
     Indication: PULMONARY HYPERTENSION
     Route: 048
     Dates: start: 20160916
  2. AMLODIPINE [Concomitant]
     Active Substance: AMLODIPINE BESYLATE
     Route: 065
  3. ADEMPAS [Suspect]
     Active Substance: RIOCIGUAT
     Indication: PULMONARY HYPERTENSION
     Route: 048
  4. XARELTO [Suspect]
     Active Substance: RIVAROXABAN
     Indication: PRODUCT USED FOR UNKNOWN INDICATION
     Route: 048
  5. ADEMPAS [Suspect]
     Active Substance: RIOCIGUAT
     Indication: PULMONARY HYPERTENSION
     Route: 048

REACTIONS (9)
  - Sinus congestion [Unknown]
  - Cough [Unknown]
  - Nasal congestion [Unknown]
  - Haematemesis [Unknown]
  - Paranasal sinus discomfort [Unknown]
  - Drug dose omission [Unknown]
  - Dyspnoea [Unknown]
  - Nasopharyngitis [Unknown]
  - Sneezing [Unknown]

NARRATIVE: CASE EVENT DATE: 20161208
